FAERS Safety Report 4282627-3 (Version None)
Quarter: 2004Q1

REPORT INFORMATION
  Report Type: 
  Country: None (occurrence: None)
  Receive Date: 20040129
  Receipt Date: 20040119
  Transmission Date: 20041129
  Serious: Yes (Other)
  Sender: FDA-Public Use
  Company Number: NSADSS2003010504

PATIENT
  Age: 63 Year
  Sex: Male

DRUGS (3)
  1. TOPAMAX [Suspect]
     Indication: CONVULSION
     Dosage: ORAL
     Route: 048
  2. ZOLOFT [Concomitant]
  3. ATIVAN [Concomitant]

REACTIONS (3)
  - APPENDICECTOMY [None]
  - CANDIDIASIS [None]
  - INFECTION [None]
